FAERS Safety Report 14586500 (Version 4)
Quarter: 2021Q1

REPORT INFORMATION
  Report Type: Report from Study
  Country: CA (occurrence: CA)
  Receive Date: 20180301
  Receipt Date: 20210220
  Transmission Date: 20210419
  Serious: Yes (Other)
  Sender: FDA-Public Use
  Company Number: PHHY2014CA014093

PATIENT
  Age: 51 Year
  Sex: Male

DRUGS (10)
  1. AFINITOR [Suspect]
     Active Substance: EVEROLIMUS
     Dosage: 10 MG, QD
     Route: 048
  2. SANDOSTATIN LAR DEPOT [Suspect]
     Active Substance: OCTREOTIDE ACETATE
     Indication: NEUROENDOCRINE CARCINOMA
     Dosage: 30 MG, QMO (ONCE A MONTH)
     Route: 030
     Dates: start: 20090814
  3. ALLOPURINOL. [Concomitant]
     Active Substance: ALLOPURINOL
     Indication: PRODUCT USED FOR UNKNOWN INDICATION
     Dosage: UNK
     Route: 065
  4. LUTETIUM (LU 177) [Concomitant]
     Active Substance: LUTETIUM LU-177
     Indication: PRODUCT USED FOR UNKNOWN INDICATION
     Dosage: RECEIVED ON JAN 2019
     Route: 065
  5. SYNTHROID [Concomitant]
     Active Substance: LEVOTHYROXINE SODIUM
     Indication: PRODUCT USED FOR UNKNOWN INDICATION
     Dosage: UNK
     Route: 065
  6. CYCLOBENZAPRINE. [Concomitant]
     Active Substance: CYCLOBENZAPRINE
     Indication: PRODUCT USED FOR UNKNOWN INDICATION
     Dosage: UNK
     Route: 065
  7. ZYLOPRIN [Concomitant]
     Indication: PRODUCT USED FOR UNKNOWN INDICATION
     Dosage: UNK
     Route: 065
  8. AFINITOR [Suspect]
     Active Substance: EVEROLIMUS
     Indication: NEUROENDOCRINE CARCINOMA
     Dosage: 10 MG, QD (EVERY DAY)
     Route: 048
     Dates: start: 20120930
  9. SANDOSTATIN LAR DEPOT [Suspect]
     Active Substance: OCTREOTIDE ACETATE
  10. SANDOSTATIN LAR DEPOT [Suspect]
     Active Substance: OCTREOTIDE ACETATE

REACTIONS (24)
  - Dysphonia [Not Recovered/Not Resolved]
  - Heart rate increased [Unknown]
  - Hypoglycaemia [Unknown]
  - Heart rate decreased [Unknown]
  - Stress [Unknown]
  - Ecchymosis [Unknown]
  - Weight decreased [Recovering/Resolving]
  - Nasopharyngitis [Unknown]
  - Platelet count decreased [Unknown]
  - Limb injury [Unknown]
  - Induration [Not Recovered/Not Resolved]
  - Oedema [Recovered/Resolved]
  - Rhinorrhoea [Unknown]
  - Cachexia [Unknown]
  - Pain [Not Recovered/Not Resolved]
  - Blood pressure systolic increased [Unknown]
  - Dyspepsia [Unknown]
  - Body temperature decreased [Unknown]
  - Nausea [Unknown]
  - Vomiting [Unknown]
  - Malignant neoplasm progression [Unknown]
  - Nasal congestion [Unknown]
  - Scan gallium [Unknown]
  - Diarrhoea [Unknown]

NARRATIVE: CASE EVENT DATE: 20140130
